FAERS Safety Report 20747076 (Version 2)
Quarter: 2022Q2

REPORT INFORMATION
  Report Type: Spontaneous
  Country: US (occurrence: US)
  Receive Date: 20220425
  Receipt Date: 20220524
  Transmission Date: 20220720
  Serious: No
  Sender: FDA-Public Use
  Company Number: US-PFIZER INC-202200322743

PATIENT
  Age: 65 Year
  Sex: Female

DRUGS (6)
  1. IBRANCE [Suspect]
     Active Substance: PALBOCICLIB
     Dosage: UNK
     Dates: start: 20220201
  2. IBRANCE [Suspect]
     Active Substance: PALBOCICLIB
     Dosage: UNK
     Dates: start: 20220207
  3. IBRANCE [Suspect]
     Active Substance: PALBOCICLIB
     Dosage: 125 MG
     Dates: start: 20220215
  4. IBRANCE [Suspect]
     Active Substance: PALBOCICLIB
     Dosage: UNK
     Dates: start: 20220216
  5. IBRANCE [Suspect]
     Active Substance: PALBOCICLIB
     Dosage: 125 MG
     Dates: start: 20220213, end: 20220302
  6. IBRANCE [Suspect]
     Active Substance: PALBOCICLIB
     Dosage: 75 MG, CYCLIC

REACTIONS (17)
  - Product dose omission issue [Unknown]
  - Fatigue [Recovering/Resolving]
  - Vomiting [Unknown]
  - Nausea [Recovering/Resolving]
  - Dizziness [Recovering/Resolving]
  - Asthenia [Unknown]
  - Decreased appetite [Recovering/Resolving]
  - Pharyngeal swelling [Not Recovered/Not Resolved]
  - Dysphagia [Not Recovered/Not Resolved]
  - Weight decreased [Unknown]
  - Dizziness [Recovering/Resolving]
  - Oropharyngeal pain [Not Recovered/Not Resolved]
  - Dysphagia [Unknown]
  - Alopecia [Unknown]
  - Radiation oesophagitis [Unknown]
  - Asthenia [Unknown]
  - Underdose [Unknown]

NARRATIVE: CASE EVENT DATE: 20220220
